FAERS Safety Report 15360572 (Version 2)
Quarter: 2018Q3

REPORT INFORMATION
  Report Type: Report from Study
  Country: US (occurrence: US)
  Receive Date: 20180907
  Receipt Date: 20180926
  Transmission Date: 20181010
  Serious: Yes (Life-Threatening, Hospitalization, Other)
  Sender: FDA-Public Use
  Company Number: US-ROCHE-2179751

PATIENT
  Sex: Female
  Weight: 81.27 kg

DRUGS (24)
  1. CYCLOPHOSPHAMIDE. [Suspect]
     Active Substance: CYCLOPHOSPHAMIDE
     Indication: CHEMOTHERAPY
     Route: 042
     Dates: start: 20180727, end: 20180729
  2. FLUDARABINE [Suspect]
     Active Substance: FLUDARABINE PHOSPHATE
     Indication: CHEMOTHERAPY
     Route: 042
     Dates: start: 20180727, end: 20180729
  3. CYANOCOBALAMIN. [Concomitant]
     Active Substance: CYANOCOBALAMIN
  4. ACYCLOVIR. [Concomitant]
     Active Substance: ACYCLOVIR
  5. VANCOMYCIN [Concomitant]
     Active Substance: VANCOMYCIN
  6. CEFTAZIDIME. [Concomitant]
     Active Substance: CEFTAZIDIME
  7. PLATELETS [Concomitant]
     Active Substance: HUMAN PLATELET, ALLOGENIC
  8. CHOLECALCIFEROL [Concomitant]
     Active Substance: CHOLECALCIFEROL
  9. LEVOTHYROXINE. [Concomitant]
     Active Substance: LEVOTHYROXINE
  10. FERROUS SULFATE. [Concomitant]
     Active Substance: FERROUS SULFATE
  11. ALLOPURINOL. [Concomitant]
     Active Substance: ALLOPURINOL
  12. HYDROCORT (HYDROCORTISONE ACETATE) [Concomitant]
  13. ATEZOLIZUMAB. [Suspect]
     Active Substance: ATEZOLIZUMAB
     Indication: DIFFUSE LARGE B-CELL LYMPHOMA REFRACTORY
     Route: 042
     Dates: start: 20180802, end: 20180802
  14. LORATADINE. [Concomitant]
     Active Substance: LORATADINE
  15. MICAFUNGIN [Concomitant]
     Active Substance: MICAFUNGIN
  16. LEVOPHED [Concomitant]
     Active Substance: NOREPINEPHRINE BITARTRATE
  17. AXICABTAGENE CILOLEUCEL [Suspect]
     Active Substance: AXICABTAGENE CILOLEUCEL
     Indication: DIFFUSE LARGE B-CELL LYMPHOMA REFRACTORY
     Route: 042
     Dates: start: 20180801, end: 20180801
  18. CHLORHEXIDINE GLUCONATE. [Concomitant]
     Active Substance: CHLORHEXIDINE GLUCONATE
  19. SULFAMETHOXAZOLE/TRIMETHOPRIM [Concomitant]
     Active Substance: SULFAMETHOXAZOLE\TRIMETHOPRIM
  20. CLINDAMYCIN. [Concomitant]
     Active Substance: CLINDAMYCIN
  21. LEVETIRACETAM. [Concomitant]
     Active Substance: LEVETIRACETAM
  22. MICONAZOLE. [Concomitant]
     Active Substance: MICONAZOLE
  23. NEULASTA [Concomitant]
     Active Substance: PEGFILGRASTIM
  24. ATOVAQUONE. [Concomitant]
     Active Substance: ATOVAQUONE

REACTIONS (10)
  - Hypotension [Not Recovered/Not Resolved]
  - Cytokine release syndrome [Recovered/Resolved]
  - Histiocytosis haematophagic [Unknown]
  - Hypoxia [Not Recovered/Not Resolved]
  - Thrombocytopenia [Not Recovered/Not Resolved]
  - Swelling face [Not Recovered/Not Resolved]
  - Leukopenia [Not Recovered/Not Resolved]
  - Neutropenia [Not Recovered/Not Resolved]
  - Pneumonitis [Not Recovered/Not Resolved]
  - Lymphopenia [Not Recovered/Not Resolved]

NARRATIVE: CASE EVENT DATE: 20180802
